FAERS Safety Report 11329406 (Version 2)
Quarter: 2015Q3

REPORT INFORMATION
  Report Type: Spontaneous
  Country: PT (occurrence: None)
  Receive Date: 20150730
  Receipt Date: 20150803
  Transmission Date: 20151125
  Serious: No
  Sender: FDA-Public Use
  Company Number: PT-LHC-2015090

PATIENT
  Age: 87 Year
  Sex: Female

DRUGS (5)
  1. ATROVENT [Concomitant]
     Active Substance: IPRATROPIUM BROMIDE
  2. BLOOD PRESSURE MEDICATION [Concomitant]
     Active Substance: UNSPECIFIED INGREDIENT
  3. VENTILAN (SALBUTAMOL) [Concomitant]
  4. CHOLESTEROL MEDICATION [Concomitant]
     Active Substance: UNSPECIFIED INGREDIENT
  5. CONOXIA (OXYGEN) (INHALATION GAS) (OXYGEN) (VERUM) [Suspect]
     Active Substance: OXYGEN
     Indication: PRODUCT USED FOR UNKNOWN INDICATION
     Dosage: 0.5 L/MIN 24H
     Route: 055
     Dates: start: 2009

REACTIONS (3)
  - Burning sensation [None]
  - Respiratory disorder [None]
  - Chest pain [None]

NARRATIVE: CASE EVENT DATE: 20150714
